FAERS Safety Report 14651353 (Version 1)
Quarter: 2018Q1

REPORT INFORMATION
  Report Type: Spontaneous
  Country: US (occurrence: US)
  Receive Date: 20180316
  Receipt Date: 20180316
  Transmission Date: 20180509
  Serious: No
  Sender: FDA-Public Use
  Company Number: US-SHIRE-US201809498

PATIENT
  Age: 72 Year
  Sex: Female
  Weight: 77.98 kg

DRUGS (1)
  1. XIIDRA [Suspect]
     Active Substance: LIFITEGRAST
     Indication: DRY EYE
     Dosage: 1 GTT, 2X/DAY:BID
     Route: 047
     Dates: start: 20180202, end: 201802

REACTIONS (3)
  - Instillation site pain [Recovered/Resolved]
  - Arthropod sting [Recovered/Resolved]
  - Instillation site reaction [Unknown]

NARRATIVE: CASE EVENT DATE: 201802
